FAERS Safety Report 13184957 (Version 16)
Quarter: 2018Q3

REPORT INFORMATION
  Report Type: Spontaneous
  Country: CA (occurrence: CA)
  Receive Date: 20170203
  Receipt Date: 20180806
  Transmission Date: 20181010
  Serious: Yes (Hospitalization)
  Sender: FDA-Public Use
  Company Number: CA-CELLTRION INC.-2016CA013873

PATIENT

DRUGS (12)
  1. INFLECTRA [Suspect]
     Active Substance: INFLIXIMAB-DYYB
     Dosage: 375 MG, CYCLIC (EVERY 4 WEEKS)
     Route: 042
     Dates: start: 20180710
  2. VENTOLIN [Concomitant]
     Active Substance: ALBUTEROL SULFATE
     Dosage: UNK, PRN
  3. INFLECTRA [Suspect]
     Active Substance: INFLIXIMAB-DYYB
     Dosage: 375 MG, CYCLIC (EVERY 6 WEEKS)
     Route: 042
     Dates: start: 2017, end: 2017
  4. INFLECTRA [Suspect]
     Active Substance: INFLIXIMAB-DYYB
     Dosage: 375 MG, CYCLIC (EVERY 4 WEEKS)
     Route: 042
     Dates: start: 20180119, end: 20180119
  5. INFLECTRA [Suspect]
     Active Substance: INFLIXIMAB-DYYB
     Dosage: 250 MG, CYCLIC (EVERY 2, 6 WEEKS, THEN EVERY 8 WEEKS FOR 24 MONTHS)
     Route: 042
     Dates: start: 20170727, end: 20170915
  6. INFLECTRA [Suspect]
     Active Substance: INFLIXIMAB-DYYB
     Dosage: 375 MG, CYCLIC (EVERY 4 WEEKS)
     Route: 042
     Dates: start: 20171027
  7. INFLECTRA [Suspect]
     Active Substance: INFLIXIMAB-DYYB
     Indication: RHEUMATOID ARTHRITIS
     Dosage: 250 MG, CYCLIC (0,2,6 WEEKS THEN EVERY 8 WEEKS FOR 24 MONTHS)
     Route: 042
     Dates: start: 20161216
  8. INFLECTRA [Suspect]
     Active Substance: INFLIXIMAB-DYYB
     Dosage: 250 MG, CYCLIC (EVERY 2, 6 WEEKS, THEN EVERY 8 WEEKS FOR 24 MONTHS)
     Route: 042
     Dates: end: 20170127
  9. INFLECTRA [Suspect]
     Active Substance: INFLIXIMAB-DYYB
     Dosage: 375 MG, CYCLIC (EVERY 4 WEEKS)
     Route: 042
     Dates: start: 20180518, end: 20180518
  10. NASONEX [Concomitant]
     Active Substance: MOMETASONE FUROATE
     Dosage: UNK, PRN
  11. INFLECTRA [Suspect]
     Active Substance: INFLIXIMAB-DYYB
     Dosage: 375 MG, CYCLIC (EVERY 4 WEEKS)
     Route: 042
     Dates: start: 20171123, end: 20171123
  12. INFLECTRA [Suspect]
     Active Substance: INFLIXIMAB-DYYB
     Dosage: 375 MG, CYCLIC (EVERY 4 WEEKS)
     Route: 042
     Dates: start: 20180220, end: 20180220

REACTIONS (23)
  - Incorrect drug administration duration [Unknown]
  - Pyrexia [Unknown]
  - Lichen planus [Recovering/Resolving]
  - Oropharyngeal pain [Not Recovered/Not Resolved]
  - Back pain [Not Recovered/Not Resolved]
  - Abdominal pain [Unknown]
  - Chills [Not Recovered/Not Resolved]
  - Weight decreased [Unknown]
  - Nasal congestion [Not Recovered/Not Resolved]
  - Cough [Not Recovered/Not Resolved]
  - Diarrhoea [Recovered/Resolved]
  - Fatigue [Recovered/Resolved]
  - Pollakiuria [Not Recovered/Not Resolved]
  - Colitis [Unknown]
  - Alopecia [Unknown]
  - Asthenia [Not Recovered/Not Resolved]
  - Decreased appetite [Not Recovered/Not Resolved]
  - Product use issue [Unknown]
  - Myalgia [Not Recovered/Not Resolved]
  - Pruritus generalised [Not Recovered/Not Resolved]
  - Product use issue [Unknown]
  - Dry mouth [Not Recovered/Not Resolved]
  - Nasopharyngitis [Not Recovered/Not Resolved]

NARRATIVE: CASE EVENT DATE: 201612
